FAERS Safety Report 8065310-8 (Version None)
Quarter: 2012Q1

REPORT INFORMATION
  Report Type: 
  Country: None (occurrence: None)
  Receive Date: 20120124
  Receipt Date: 20120117
  Transmission Date: 20120608
  Serious: Yes (Other)
  Sender: FDA-Public Use
  Company Number: US-BAYER-2011-122353

PATIENT
  Age: 79 Year
  Sex: Male

DRUGS (2)
  1. NEXAVAR [Suspect]
     Dosage: UNK
     Route: 048
  2. NEXAVAR [Suspect]
     Indication: RENAL CANCER
     Dosage: 200 MG, BID
     Route: 048
     Dates: start: 20111202

REACTIONS (6)
  - DYSPEPSIA [None]
  - PAIN [None]
  - POLLAKIURIA [None]
  - AMNESIA [None]
  - ARTHRALGIA [None]
  - CONFUSIONAL STATE [None]
